FAERS Safety Report 8281472-1 (Version None)
Quarter: 2012Q2

REPORT INFORMATION
  Report Type: 
  Country: None (occurrence: None)
  Receive Date: 20120410
  Receipt Date: 20120328
  Transmission Date: 20120825
  Serious: Yes (Life-Threatening)
  Sender: FDA-Public Use
  Company Number: MC201200193

PATIENT
  Age: 63 Year
  Sex: Female

DRUGS (4)
  1. ANGIOMAX [Suspect]
     Indication: PERCUTANEOUS CORONARY INTERVENTION
     Dosage: 0.75 MG/KG, BOLUS, INTRAVENOUS 1.75 MG/KG, HR INTRAVENOUSE 0.25 MG/KG, HR, INTRAVENOUS
     Route: 042
     Dates: start: 20120321, end: 20120321
  2. TICAGRELOR [Concomitant]
  3. ASA (ASA) [Concomitant]
  4. ATORVASTATIN CALCIUM [Concomitant]

REACTIONS (3)
  - MYOCARDIAL INFARCTION [None]
  - VOMITING [None]
  - THROMBOSIS IN DEVICE [None]
